FAERS Safety Report 14871466 (Version 2)
Quarter: 2021Q3

REPORT INFORMATION
  Report Type: Report from Study
  Country: US (occurrence: US)
  Receive Date: 20180509
  Receipt Date: 20210719
  Transmission Date: 20211014
  Serious: Yes (Other)
  Sender: FDA-Public Use
  Company Number: US-SA-2018SA130385

PATIENT
  Age: 58 Year
  Sex: Male

DRUGS (2)
  1. INSULIN GLARGINE [Suspect]
     Active Substance: INSULIN GLARGINE
     Indication: TYPE 2 DIABETES MELLITUS
     Dosage: 70 IU, HS
     Route: 058
     Dates: start: 2014, end: 20180427
  2. INSULIN GLARGINE [Suspect]
     Active Substance: INSULIN GLARGINE
     Dosage: 80 IU, HS
     Route: 058

REACTIONS (4)
  - Nervous system disorder [Unknown]
  - Product dose omission issue [Unknown]
  - Nephrolithiasis [Unknown]
  - Glycosylated haemoglobin increased [Unknown]
